FAERS Safety Report 8804441 (Version 1)
Quarter: 2012Q4

REPORT INFORMATION
  Report Type: 
  Country: US (occurrence: US)
  Receive Date: 20120924
  Receipt Date: 20120924
  Transmission Date: 20130627
  Serious: Yes (Other)
  Sender: FDA-Public Use
  Company Number: US-JNJFOC-20110812762

PATIENT
  Age: 53 None
  Sex: Female

DRUGS (8)
  1. LEVAQUIN [Suspect]
     Indication: DIVERTICULITIS
     Route: 048
  2. LEVAQUIN [Suspect]
     Indication: DIVERTICULITIS
     Route: 048
  3. LEVAQUIN [Suspect]
     Indication: LOCALISED INFECTION
     Route: 048
  4. LEVAQUIN [Suspect]
     Indication: LOCALISED INFECTION
     Route: 048
  5. LEVAQUIN [Suspect]
     Indication: BACTERIAL INFECTION
     Route: 048
  6. LEVAQUIN [Suspect]
     Indication: BACTERIAL INFECTION
     Route: 048
  7. CIPROFLOXACIN [Suspect]
     Indication: LOCALISED INFECTION
     Route: 065
  8. CIPROFLOXACIN [Suspect]
     Indication: DIVERTICULITIS
     Route: 065

REACTIONS (2)
  - Tendon rupture [Unknown]
  - Tendon disorder [Unknown]
